FAERS Safety Report 9224555 (Version 1)
Quarter: 2013Q2

REPORT INFORMATION
  Report Type: Spontaneous
  Country: US (occurrence: None)
  Receive Date: 20130411
  Receipt Date: 20130411
  Transmission Date: 20140414
  Serious: Yes (Hospitalization)
  Sender: FDA-Public Use
  Company Number: None

PATIENT
  Age: 68 Year
  Sex: Female
  Weight: 95 kg

DRUGS (17)
  1. COUMADIN [Suspect]
     Indication: ATRIAL FIBRILLATION
     Dosage: 3MG   FRIDAY  PO?CHRONIC
     Route: 048
  2. COUMADIN [Suspect]
     Indication: ATRIAL FIBRILLATION
     Dosage: 5MG   MTWTHSS   PO?CHRONIC
     Route: 048
  3. LYRICA [Concomitant]
  4. ZETIA [Concomitant]
  5. CYMBALTA [Concomitant]
  6. CARDIZEM CD [Concomitant]
  7. DIGITEK [Concomitant]
  8. ATENOLOL [Concomitant]
  9. MVI [Concomitant]
  10. AMITRIPTYLINE [Concomitant]
  11. BUTRANS [Concomitant]
  12. TYLENOL [Concomitant]
  13. PROTONIX [Concomitant]
  14. ZESTORECTIC [Concomitant]
  15. VITD [Concomitant]
  16. VITAMIN B12 [Concomitant]
  17. NORCO [Concomitant]

REACTIONS (1)
  - Upper gastrointestinal haemorrhage [None]
